FAERS Safety Report 4831786-X (Version None)
Quarter: 2005Q4

REPORT INFORMATION
  Report Type: 
  Country: None (occurrence: None)
  Receive Date: 20051118
  Receipt Date: 20050915
  Transmission Date: 20060501
  Serious: Yes (Death)
  Sender: FDA-Public Use
  Company Number: US-MERCK-0509USA02471

PATIENT
  Age: 42 Year
  Sex: Male
  Weight: 135 kg

DRUGS (6)
  1. VIOXX [Suspect]
     Indication: BACK PAIN
     Route: 048
     Dates: start: 20001205, end: 20020901
  2. DURAGESIC-100 [Concomitant]
     Indication: BACK PAIN
     Route: 065
     Dates: start: 19990101, end: 20020901
  3. SOMA [Concomitant]
     Indication: BACK PAIN
     Route: 065
     Dates: start: 19990101, end: 20020901
  4. VICODIN [Concomitant]
     Indication: BACK PAIN
     Route: 065
     Dates: start: 19990101, end: 20020901
  5. SERZONE [Concomitant]
     Indication: DEPRESSION
     Route: 065
     Dates: start: 20000519, end: 20011201
  6. WELLBUTRIN [Concomitant]
     Indication: DEPRESSION
     Route: 065
     Dates: start: 20000519, end: 20011201

REACTIONS (4)
  - ARTERIOSCLEROSIS CORONARY ARTERY [None]
  - DEPRESSION [None]
  - MYOCARDIAL INFARCTION [None]
  - OBESITY [None]
